FAERS Safety Report 9573606 (Version 2)
Quarter: 2013Q4

REPORT INFORMATION
  Report Type: Spontaneous
  Country: US (occurrence: US)
  Receive Date: 20131001
  Receipt Date: 20131030
  Transmission Date: 20140711
  Serious: Yes (Hospitalization)
  Sender: FDA-Public Use
  Company Number: US-PFIZER INC-2013276758

PATIENT
  Age: 68 Year
  Sex: Female

DRUGS (2)
  1. INLYTA [Suspect]
     Indication: RENAL CANCER
     Dosage: 5 MG, Q 12 HOURLY
     Route: 048
     Dates: start: 20130731, end: 20130826
  2. SUTENT [Concomitant]
     Dosage: 50 MG, DAILY X 4 WKS Q 6 WKS
     Dates: end: 20130723

REACTIONS (5)
  - Convulsion [Recovered/Resolved]
  - Loss of consciousness [Recovered/Resolved]
  - Posterior reversible encephalopathy syndrome [Recovered/Resolved]
  - Disease progression [Unknown]
  - Renal cancer [Unknown]
